FAERS Safety Report 10180094 (Version 3)
Quarter: 2016Q4

REPORT INFORMATION
  Report Type: Spontaneous
  Country: US (occurrence: US)
  Receive Date: 20140519
  Receipt Date: 20161005
  Transmission Date: 20170206
  Serious: No
  Sender: FDA-Public Use
  Company Number: US-AMGEN INC.-USASP2013069737

PATIENT
  Age: 77 Year
  Sex: Female

DRUGS (3)
  1. PROLIA [Suspect]
     Active Substance: DENOSUMAB
     Indication: OSTEOPOROSIS POSTMENOPAUSAL
     Dosage: UNK
     Route: 065
     Dates: start: 20110920, end: 2013
  2. CALCIUM WITH VITAMIN D             /00944201/ [Concomitant]
     Active Substance: CALCIUM CARBONATE\CHOLECALCIFEROL
  3. WARFARIN [Concomitant]
     Active Substance: WARFARIN

REACTIONS (13)
  - Sleep disorder due to a general medical condition [Unknown]
  - Thrombosis [Unknown]
  - Paraesthesia oral [Not Recovered/Not Resolved]
  - Bone density decreased [Unknown]
  - Erythema [Unknown]
  - Feeling hot [Unknown]
  - Paraesthesia [Recovered/Resolved]
  - Amnesia [Unknown]
  - Oesophageal spasm [Unknown]
  - Cataract [Unknown]
  - Hypoaesthesia [Recovered/Resolved]
  - Hypercholesterolaemia [Unknown]
  - Hypoaesthesia oral [Not Recovered/Not Resolved]

NARRATIVE: CASE EVENT DATE: 201204
